FAERS Safety Report 9101280 (Version 1)
Quarter: 2013Q1

REPORT INFORMATION
  Report Type: Report from Study
  Country: NG (occurrence: NG)
  Receive Date: 20130218
  Receipt Date: 20130218
  Transmission Date: 20140127
  Serious: Yes (Death, Disabling, Other)
  Sender: FDA-Public Use
  Company Number: NG-ROCHE-1115131

PATIENT
  Sex: Female

DRUGS (1)
  1. DIAZEPAM [Suspect]
     Indication: ECLAMPSIA
     Route: 065

REACTIONS (13)
  - Cerebrovascular accident [Fatal]
  - Pulmonary oedema [Fatal]
  - Pneumonia aspiration [Fatal]
  - Blindness cortical [Unknown]
  - Loss of consciousness [Unknown]
  - Renal failure acute [Unknown]
  - HELLP syndrome [Unknown]
  - Urogenital fistula [Unknown]
  - Premature separation of placenta [Unknown]
  - Coagulopathy [Unknown]
  - Cardiomegaly [Unknown]
  - Premature labour [Unknown]
  - Exposure during pregnancy [Unknown]
